FAERS Safety Report 13973594 (Version 2)
Quarter: 2018Q3

REPORT INFORMATION
  Report Type: Spontaneous
  Country: US (occurrence: US)
  Receive Date: 20170914
  Receipt Date: 20180913
  Transmission Date: 20181010
  Serious: No
  Sender: FDA-Public Use
  Company Number: US-ASTELLAS-2017US017340

PATIENT
  Age: 82 Year
  Sex: Male

DRUGS (4)
  1. XTANDI [Suspect]
     Active Substance: ENZALUTAMIDE
     Dosage: ALTERNATING 80MG WITH 120MG, EVERY OTHER DAY
     Route: 065
     Dates: start: 20170215
  2. XTANDI [Suspect]
     Active Substance: ENZALUTAMIDE
     Indication: PRODUCT USED FOR UNKNOWN INDICATION
     Route: 065
  3. XTANDI [Suspect]
     Active Substance: ENZALUTAMIDE
     Route: 065
     Dates: start: 201702
  4. XTANDI [Suspect]
     Active Substance: ENZALUTAMIDE
     Route: 065

REACTIONS (11)
  - Peripheral swelling [Not Recovered/Not Resolved]
  - Treatment noncompliance [Unknown]
  - Bedridden [Recovering/Resolving]
  - Nervousness [Unknown]
  - Hot flush [Unknown]
  - Joint swelling [Not Recovered/Not Resolved]
  - Asthenia [Unknown]
  - Decreased appetite [Not Recovered/Not Resolved]
  - Dizziness [Not Recovered/Not Resolved]
  - Musculoskeletal pain [Recovering/Resolving]
  - Inappropriate schedule of drug administration [Unknown]

NARRATIVE: CASE EVENT DATE: 201704
